FAERS Safety Report 11596613 (Version 1)
Quarter: 2015Q4

REPORT INFORMATION
  Report Type: Spontaneous
  Country: US (occurrence: US)
  Receive Date: 20151006
  Receipt Date: 20151006
  Transmission Date: 20160304
  Serious: Yes (Other)
  Sender: FDA-Public Use
  Company Number: US-ELI_LILLY_AND_COMPANY-US201510000950

PATIENT
  Sex: Male

DRUGS (2)
  1. CYMBALTA [Suspect]
     Active Substance: DULOXETINE HYDROCHLORIDE
     Indication: PAIN
     Route: 065
  2. CYMBALTA [Suspect]
     Active Substance: DULOXETINE HYDROCHLORIDE
     Indication: DEPRESSION

REACTIONS (14)
  - Suicidal ideation [Unknown]
  - Nightmare [Unknown]
  - Aggression [Unknown]
  - Dizziness [Unknown]
  - Sleep disorder [Unknown]
  - Hyperhidrosis [Unknown]
  - Nausea [Unknown]
  - Memory impairment [Unknown]
  - Crying [Unknown]
  - Drug withdrawal syndrome [Unknown]
  - Disturbance in attention [Unknown]
  - Vomiting [Unknown]
  - Confusional state [Unknown]
  - Paraesthesia [Unknown]
